FAERS Safety Report 4386753-X (Version None)
Quarter: 2004Q2

REPORT INFORMATION
  Report Type: 
  Country: None (occurrence: None)
  Receive Date: 20040629
  Receipt Date: 20040621
  Transmission Date: 20050107
  Serious: Yes (Hospitalization)
  Sender: FDA-Public Use
  Company Number: DE-MERCK-0406DEU00138

PATIENT
  Age: 54 Year
  Sex: Male

DRUGS (1)
  1. PROPECIA [Suspect]
     Indication: MALE PATTERN BALDNESS
     Route: 048
     Dates: start: 19980101

REACTIONS (2)
  - GYNAECOMASTIA [None]
  - INTERVERTEBRAL DISC PROTRUSION [None]
